FAERS Safety Report 8555482-0 (Version None)
Quarter: 2012Q3

REPORT INFORMATION
  Report Type: 
  Country: None (occurrence: None)
  Receive Date: 20120731
  Receipt Date: 20111202
  Transmission Date: 20120928
  Serious: No
  Sender: FDA-Public Use
  Company Number: US-ASTRAZENECA-2011SE17107

PATIENT
  Age: 35 Year
  Sex: Male
  Weight: 86.6 kg

DRUGS (3)
  1. SEROQUEL [Suspect]
     Indication: BIPOLAR I DISORDER
     Route: 048
     Dates: start: 20101201
  2. SEROQUEL [Suspect]
     Route: 048
  3. SEROQUEL [Suspect]
     Route: 048

REACTIONS (4)
  - THERAPEUTIC RESPONSE UNEXPECTED [None]
  - DRUG EFFECT DECREASED [None]
  - MENTAL DISORDER [None]
  - LACRIMATION INCREASED [None]
